FAERS Safety Report 12798355 (Version 5)
Quarter: 2017Q1

REPORT INFORMATION
  Report Type: Spontaneous
  Country: IT (occurrence: IT)
  Receive Date: 20160930
  Receipt Date: 20170124
  Transmission Date: 20170428
  Serious: Yes (Hospitalization)
  Sender: FDA-Public Use
  Company Number: IT-BIOGEN-2016BI00296401

PATIENT
  Age: 58 Year
  Sex: Female

DRUGS (1)
  1. TECFIDERA [Suspect]
     Active Substance: DIMETHYL FUMARATE
     Indication: MULTIPLE SCLEROSIS
     Dosage: MAINTENANCE DOSE
     Route: 048
     Dates: start: 20150501, end: 20160920

REACTIONS (5)
  - Psoriasis [Unknown]
  - Hyperpyrexia [Unknown]
  - Limb injury [Unknown]
  - Erysipelas [Unknown]
  - Vasculitis [Unknown]

NARRATIVE: CASE EVENT DATE: 20160910
